FAERS Safety Report 6109545-X (Version None)
Quarter: 2009Q1

REPORT INFORMATION
  Report Type: 
  Country: None (occurrence: None)
  Receive Date: 20090310
  Receipt Date: 20090306
  Transmission Date: 20090719
  Serious: Yes (Hospitalization)
  Sender: FDA-Public Use
  Company Number: FR-WYE-G03266109

PATIENT
  Sex: Female

DRUGS (3)
  1. TAZOCILLINE [Suspect]
     Dosage: UNKNOWN
     Route: 042
     Dates: start: 20081212, end: 20081213
  2. CIFLOX [Suspect]
     Dosage: UNKNOWN
     Route: 042
     Dates: start: 20081212, end: 20081217
  3. MERONEM [Suspect]
     Route: 042
     Dates: start: 20081215, end: 20081217

REACTIONS (4)
  - CROSS SENSITIVITY REACTION [None]
  - RASH MACULO-PAPULAR [None]
  - RASH PRURITIC [None]
  - TOXIC SKIN ERUPTION [None]
